FAERS Safety Report 8904490 (Version 1)
Quarter: 2012Q4

REPORT INFORMATION
  Report Type: 
  Country: US (occurrence: US)
  Receive Date: 20121112
  Receipt Date: 20121112
  Transmission Date: 20130627
  Serious: Yes (Other)
  Sender: FDA-Public Use
  Company Number: US-ASTRAZENECA-2012SE44983

PATIENT
  Age: 71 Year
  Sex: Female
  Weight: 49.4 kg

DRUGS (4)
  1. NEXIUM [Suspect]
     Indication: ASTHMA
     Route: 048
     Dates: start: 20080810
  2. NEXIUM [Suspect]
     Indication: COUGH
     Route: 048
     Dates: start: 20080810
  3. NEXIUM [Suspect]
     Indication: GASTROOESOPHAGEAL REFLUX DISEASE
     Route: 048
     Dates: start: 20080810
  4. SYMBICORT PMDI [Suspect]
     Dosage: UNKNOWN DOSE, UNKNOWN FREQUENCY
     Route: 055

REACTIONS (3)
  - Myocardial infarction [Recovered/Resolved]
  - Coronary artery disease [Unknown]
  - Off label use [Unknown]
